FAERS Safety Report 5611876-4 (Version None)
Quarter: 2008Q1

REPORT INFORMATION
  Report Type: 
  Country: None (occurrence: None)
  Receive Date: 20080204
  Receipt Date: 20080102
  Transmission Date: 20080703
  Serious: No
  Sender: FDA-Public Use
  Company Number: US-BAYER-200810112NA

PATIENT
  Age: 62 Year
  Sex: Female

DRUGS (6)
  1. AVELOX [Suspect]
     Indication: SINUSITIS
     Route: 048
     Dates: start: 20071101, end: 20071101
  2. AVELOX [Suspect]
     Route: 048
     Dates: start: 20071201, end: 20071201
  3. XOPENEX HFA [Concomitant]
     Indication: CHRONIC OBSTRUCTIVE PULMONARY DISEASE
     Dosage: UNIT DOSE: 45 ?G
     Route: 055
     Dates: start: 20061001, end: 20071130
  4. ADVAIR DISKUS 100/50 [Concomitant]
  5. SPIRIVA [Concomitant]
  6. OXYGEN [Concomitant]

REACTIONS (2)
  - ABDOMINAL PAIN UPPER [None]
  - NERVOUSNESS [None]
